FAERS Safety Report 5002850-X (Version None)
Quarter: 2006Q2

REPORT INFORMATION
  Report Type: 
  Country: None (occurrence: None)
  Receive Date: 20060516
  Receipt Date: 20060511
  Transmission Date: 20061013
  Serious: Yes (Other)
  Sender: FDA-Public Use
  Company Number: US-AVENTIS-200614242US

PATIENT
  Age: 50 Year
  Sex: Female
  Weight: 54.54 kg

DRUGS (7)
  1. KETEK [Suspect]
     Indication: SINUSITIS
     Route: 048
     Dates: start: 20060401, end: 20060401
  2. ADVAIR DISKUS 100/50 [Concomitant]
     Dosage: DOSE: UNKNOWN
  3. ORTHO TRI-CYCLEN [Concomitant]
     Dosage: DOSE: UNKNOWN
  4. SINGULAIR [Concomitant]
     Dosage: DOSE: UNKNOWN
  5. ZYRTEC [Concomitant]
     Dosage: DOSE: UNKNOWN
  6. PULMICORT [Concomitant]
     Dosage: DOSE: UNKNOWN
  7. MOTRIN [Concomitant]
     Dosage: DOSE: UNKNOWN

REACTIONS (4)
  - ABDOMINAL PAIN [None]
  - FATIGUE [None]
  - HEPATITIS [None]
  - LIVER FUNCTION TEST ABNORMAL [None]
